FAERS Safety Report 7574996-3 (Version None)
Quarter: 2011Q2

REPORT INFORMATION
  Report Type: 
  Country: None (occurrence: None)
  Receive Date: 20110627
  Receipt Date: 20080129
  Transmission Date: 20111010
  Serious: Yes (Death, Other)
  Sender: FDA-Public Use
  Company Number: US-BAYER-2011-007498

PATIENT
  Age: 67 Year
  Sex: Female
  Weight: 76.19 kg

DRUGS (23)
  1. FENOFIBRATE [Concomitant]
     Dosage: 160 MG, QD
     Route: 048
  2. ENALAPRIL MALEATE [Concomitant]
     Dosage: 40 MG, QD
     Route: 048
  3. PROPOXYPHENE HYDROCHLORIDE [Concomitant]
     Dosage: 80 MG, QD
     Route: 048
  4. CLOPIDOGREL [Concomitant]
     Dosage: UNK
     Route: 048
     Dates: start: 20011221
  5. NEOSYNEPHRINE [Concomitant]
     Dosage: 0.5 MG
     Route: 042
     Dates: start: 20011221
  6. TRASYLOL [Suspect]
     Indication: HEART VALVE REPLACEMENT
     Dosage: 25 ML/HOUR INFUSION
     Route: 042
     Dates: start: 20020102, end: 20020102
  7. HEPARIN [Concomitant]
     Dosage: 40,000 UNITS
     Route: 042
     Dates: start: 20011221
  8. ALBUMIN (HUMAN) [Concomitant]
     Dosage: 500 ML+#8217;S
     Route: 042
     Dates: start: 20011221
  9. RED BLOOD CELLS [Concomitant]
     Dosage: 4 U, UNK
     Route: 042
     Dates: start: 20020102
  10. INSULIN [Concomitant]
     Dosage: 15 UNITS
     Route: 042
     Dates: start: 20011221
  11. PREDNISONE [Concomitant]
     Route: 048
  12. METOPROLOL TARTRATE [Concomitant]
     Dosage: UNK
     Route: 048
     Dates: start: 20011221
  13. INSULIN [Concomitant]
     Dosage: SLIDING SCALE
     Route: 058
  14. PIOGLITAZONE [Concomitant]
     Dosage: 30 MG, QD
     Route: 048
  15. CEFAZOLIN [Concomitant]
     Dosage: 3 GRAMS
     Route: 042
     Dates: start: 20011221
  16. VERSED [Concomitant]
     Dosage: 4 MG
     Route: 042
     Dates: start: 20011221
  17. TRASYLOL [Suspect]
     Indication: CORONARY ARTERY BYPASS
     Dosage: 100 ML PUMP PRIME/BOLUS
     Route: 042
     Dates: start: 20020102, end: 20020102
  18. PENTOXIFYLLINE [Concomitant]
     Dosage: 400 MG, QD
     Route: 048
  19. ACETYLSALICYLIC ACID SRT [Concomitant]
     Dosage: 325 MG, QD
     Route: 048
  20. NITROGLYCERIN [Concomitant]
     Dosage: UNK
     Route: 042
     Dates: start: 20011221
  21. LEVOFLOXACIN [Concomitant]
     Dosage: UNK
     Route: 048
     Dates: start: 20011221
  22. FENTANYL [Concomitant]
     Dosage: 17 ML+#8217;S
     Route: 042
     Dates: start: 20011221
  23. PLASMALYTE 56 IN 5% DEXTROSE [Concomitant]
     Dosage: 3000 ML+#8217;S
     Route: 042
     Dates: start: 20011221

REACTIONS (11)
  - HYPERTENSION [None]
  - ANXIETY [None]
  - FEAR [None]
  - DEPRESSION [None]
  - DIABETES MELLITUS [None]
  - CORONARY ARTERY DISEASE [None]
  - INJURY [None]
  - CARDIAC ARREST [None]
  - UNEVALUABLE EVENT [None]
  - RENAL FAILURE [None]
  - PAIN [None]
